FAERS Safety Report 6915076-7 (Version None)
Quarter: 2010Q3

REPORT INFORMATION
  Report Type: 
  Country: None (occurrence: None)
  Receive Date: 20100809
  Receipt Date: 20100728
  Transmission Date: 20110219
  Serious: Yes (Other)
  Sender: FDA-Public Use
  Company Number: ZA-PFIZER INC-2010095270

PATIENT
  Age: 75 Year
  Sex: Female

DRUGS (2)
  1. SALAZOPYRIN [Suspect]
     Route: 048
  2. LYRICA [Concomitant]
     Route: 048

REACTIONS (1)
  - NEURALGIA [None]
